FAERS Safety Report 9669242 (Version 1)
Quarter: 2013Q4

REPORT INFORMATION
  Report Type: Spontaneous
  Country: NO (occurrence: NO)
  Receive Date: 20131105
  Receipt Date: 20131105
  Transmission Date: 20140711
  Serious: Yes (Death)
  Sender: FDA-Public Use
  Company Number: NO-TEVA-439652ISR

PATIENT
  Sex: Female

DRUGS (10)
  1. MORFIN [Suspect]
     Indication: PAIN
  2. DUROGESIC [Interacting]
     Indication: PAIN
     Dosage: 25 MICROGRAM/HOUR, CHANGED EVERY THIRD DAY
  3. ZOPICLONE [Interacting]
     Dosage: IN THE EVENING
  4. INSTANYL [Interacting]
     Indication: LYMPHOMA
     Dosage: DOSE UNKNOWN
  5. VALTREX [Concomitant]
  6. PARACET [Concomitant]
     Dates: end: 20130624
  7. CALCIGRAN FORTE [Concomitant]
  8. ALENDRONIC ACID [Concomitant]
  9. SOMAC [Concomitant]
  10. PREDNISOLON [Concomitant]
     Dosage: 7,5 MG MORNING

REACTIONS (3)
  - Drug abuse [Fatal]
  - Drug dependence [Fatal]
  - Drug interaction [Fatal]
